FAERS Safety Report 20492568 (Version 9)
Quarter: 2022Q3

REPORT INFORMATION
  Report Type: Spontaneous
  Country: GB (occurrence: GB)
  Receive Date: 20220219
  Receipt Date: 20220913
  Transmission Date: 20221027
  Serious: Yes (Death, Hospitalization, Other)
  Sender: FDA-Public Use
  Company Number: GB-ROCHE-2238515

PATIENT
  Age: 33 Year
  Sex: Female

DRUGS (123)
  1. ANASTROZOLE [Suspect]
     Active Substance: ANASTROZOLE
     Indication: HER2 positive breast cancer
     Dosage: 1 MG, QD
     Route: 048
     Dates: start: 20180606, end: 20190904
  2. ANASTROZOLE [Suspect]
     Active Substance: ANASTROZOLE
     Indication: Breast cancer metastatic
  3. TAMOXIFEN [Suspect]
     Active Substance: TAMOXIFEN
     Indication: HER2 positive breast cancer
     Dosage: 20 MILLIGRAM, ONCE A DAY
     Route: 065
     Dates: start: 20170623, end: 20171228
  4. TAMOXIFEN [Suspect]
     Active Substance: TAMOXIFEN
     Dosage: 20 MILLIGRAM, ONCE A DAY
     Route: 065
     Dates: start: 20180213, end: 20180605
  5. DOCETAXEL [Suspect]
     Active Substance: DOCETAXEL
     Indication: HER2 positive breast cancer
     Dosage: 130 MILLIGRAM, Q3WK
     Route: 042
     Dates: start: 20160701, end: 20160727
  6. DOCETAXEL [Suspect]
     Active Substance: DOCETAXEL
     Indication: Breast cancer metastatic
     Dosage: 110 MILLIGRAM, Q3WK
     Route: 042
     Dates: start: 20160907, end: 20161021
  7. DOCETAXEL [Suspect]
     Active Substance: DOCETAXEL
     Dosage: 108 MILLIGRAM (108 MG, Q3W)
     Route: 042
     Dates: start: 20161111
  8. DOCETAXEL [Suspect]
     Active Substance: DOCETAXEL
     Dosage: 500 MG, EVERY 12 HOURS
     Route: 042
     Dates: start: 20170617
  9. ENHERTU [Suspect]
     Active Substance: FAM-TRASTUZUMAB DERUXTECAN-NXKI
     Indication: HER2 positive breast cancer
     Dosage: 567 MG, QD; INJECTION, POWDER, LYOPHILIZED, FOR SOLUTION (DOSE FORM: 120)
     Route: 042
     Dates: start: 20160609, end: 20160609
  10. ENHERTU [Suspect]
     Active Substance: FAM-TRASTUZUMAB DERUXTECAN-NXKI
     Dosage: 420 MG, ONCE EVERY 3 WK
     Route: 042
     Dates: start: 20160701, end: 20160727
  11. ENHERTU [Suspect]
     Active Substance: FAM-TRASTUZUMAB DERUXTECAN-NXKI
     Dosage: 420 MG, ONCE EVERY 3 WK; INJECTION, POWDER, LYOPHILIZED, FOR SOLUTION
     Route: 042
     Dates: start: 20160907, end: 20160926
  12. ENHERTU [Suspect]
     Active Substance: FAM-TRASTUZUMAB DERUXTECAN-NXKI
     Dosage: 451.5 MG, EVERY 3 WEEKS
     Route: 042
     Dates: start: 20161021, end: 20161111
  13. ENHERTU [Suspect]
     Active Substance: FAM-TRASTUZUMAB DERUXTECAN-NXKI
     Dosage: 452 MILLIGRAM,  3 WEEK
     Route: 042
     Dates: start: 20161111, end: 20170519
  14. ENHERTU [Suspect]
     Active Substance: FAM-TRASTUZUMAB DERUXTECAN-NXKI
     Dosage: 420 MG, ONCE EVERY 3 WK; INJECTION, POWDER, LYOPHILIZED, FOR SOLUTION
     Route: 042
     Dates: start: 20161202, end: 20170203
  15. ENHERTU [Suspect]
     Active Substance: FAM-TRASTUZUMAB DERUXTECAN-NXKI
     Dosage: 415.5 MG 451.5 MG, EVERY 3 WEEKS
     Route: 042
     Dates: start: 20161111, end: 20170519
  16. ENHERTU [Suspect]
     Active Substance: FAM-TRASTUZUMAB DERUXTECAN-NXKI
     Dosage: 473 MG, ONCE EVERY 3 WK; INJECTION, POWDER, LYOPHILIZED, FOR SOLUTION (DOSE FORM: 120)
     Route: 042
     Dates: start: 20170428, end: 20170519
  17. ENHERTU [Suspect]
     Active Substance: FAM-TRASTUZUMAB DERUXTECAN-NXKI
     Dosage: 420 MILLIGRAM
     Route: 042
     Dates: start: 20170202, end: 20170203
  18. ENHERTU [Suspect]
     Active Substance: FAM-TRASTUZUMAB DERUXTECAN-NXKI
     Dosage: 420 MG, ONCE EVERY 3 WK; INJECTION, POWDER, LYOPHILIZED, FOR SOLUTION (DOSE FORM: 120)
     Route: 042
     Dates: start: 20170224, end: 20170407
  19. ENHERTU [Suspect]
     Active Substance: FAM-TRASTUZUMAB DERUXTECAN-NXKI
     Dosage: 473 MG, ONCE EVERY 3 WK; INJECTION, POWDER, LYOPHILIZED, FOR SOLUTION
     Route: 042
     Dates: start: 20170428, end: 20170519
  20. ENHERTU [Suspect]
     Active Substance: FAM-TRASTUZUMAB DERUXTECAN-NXKI
     Dosage: 473 MG, ONCE EVERY 3 WK; INJECTION, POWDER, LYOPHILIZED, FOR SOLUTION (DOSE FORM: 120)
     Route: 042
     Dates: start: 20170519, end: 20171228
  21. ENHERTU [Suspect]
     Active Substance: FAM-TRASTUZUMAB DERUXTECAN-NXKI
     Dosage: LOADING DOSE; INJECTION, POWDER, LYOPHILIZED, FOR SOLUTION (DOSE FORM: 120)
     Route: 042
     Dates: start: 20170612, end: 20171228
  22. ENHERTU [Suspect]
     Active Substance: FAM-TRASTUZUMAB DERUXTECAN-NXKI
     Dosage: 451.5 MG, EVERY 3 WEEKS; INJECTION, POWDER, LYOPHILIZED, FOR SOLUTION
     Route: 042
     Dates: start: 20180831
  23. ENHERTU [Suspect]
     Active Substance: FAM-TRASTUZUMAB DERUXTECAN-NXKI
     Dosage: 420 MILLIGRAM
     Route: 042
     Dates: start: 20160701, end: 20200727
  24. PERTUZUMAB [Suspect]
     Active Substance: PERTUZUMAB
     Indication: HER2 positive breast cancer
     Dosage: 840MG, QD (LOADING DOSE, INFUSION, SOLUTION)
     Route: 042
     Dates: start: 20160609
  25. PERTUZUMAB [Suspect]
     Active Substance: PERTUZUMAB
     Indication: Breast cancer metastatic
     Dosage: 420 MG, EVERY 3 WEEKS (PHARMACEUTICAL DOSE FORM: 230; CUMULATIVE DOSE TO FIRST REACTION: 420MG)
     Route: 042
     Dates: start: 20160701, end: 20171228
  26. TRASTUZUMAB [Suspect]
     Active Substance: TRASTUZUMAB
     Indication: HER2 positive breast cancer
     Dosage: LOADING DOSE, INFUSION, SOLUTION (DOSE FORM: 293)
     Route: 042
     Dates: start: 20160609, end: 20160609
  27. TRASTUZUMAB [Suspect]
     Active Substance: TRASTUZUMAB
     Indication: Breast cancer metastatic
     Dosage: 420 MILLIGRAM, TIW
     Route: 042
     Dates: start: 20160907
  28. TRASTUZUMAB [Suspect]
     Active Substance: TRASTUZUMAB
     Dosage: 441MG EVERY 3 WEEKS (DOSE FORM: 230) (CUMULATIVE DOSE: 987MG)
     Route: 042
     Dates: start: 20160907, end: 20160926
  29. TRASTUZUMAB [Suspect]
     Active Substance: TRASTUZUMAB
     Dosage: 451.5 MG EVERY 3 WEEKS (DOSE FORM: 230) (CUMULATIVE DOSE: 1955.5MG)
     Route: 042
     Dates: start: 20161021, end: 20161111
  30. TRASTUZUMAB [Suspect]
     Active Substance: TRASTUZUMAB
     Dosage: 451.5 MG, EVERY 3 WEEKS
     Route: 042
     Dates: start: 20161202, end: 20170203
  31. TRASTUZUMAB [Suspect]
     Active Substance: TRASTUZUMAB
     Dosage: 430.5 MILLIGRAM, 3 TIMES/WK (DOSAGE FORM: 200) (CUMULATIVE DOSE: 39997.68 MG)
     Route: 042
     Dates: start: 20170224, end: 20170407
  32. TRASTUZUMAB [Suspect]
     Active Substance: TRASTUZUMAB
     Dosage: 451.5 MILLIGRAM, 3 TIMES/WK (PHARMACEUTICAL DOSE FORM: 200) (CUMULATIVE DOSE: 21680.062)
     Route: 042
     Dates: start: 20161111, end: 20170519
  33. TRASTUZUMAB [Suspect]
     Active Substance: TRASTUZUMAB
     Dosage: 420 MILLIGRAM, Q3W
     Route: 042
     Dates: start: 20160701
  34. TRASTUZUMAB [Suspect]
     Active Substance: TRASTUZUMAB
     Dosage: 441 MILLIGRAM
     Route: 042
     Dates: start: 20161202, end: 20170203
  35. TRASTUZUMAB [Suspect]
     Active Substance: TRASTUZUMAB
     Dosage: 451.5 MILLIGRAM, 3 TIMES/WK (PHARMACEUTICAL DOSE FORM: 200) (CUMULATIVE DOSE: 54180.0MG)
     Route: 042
     Dates: start: 20170428
  36. ADO-TRASTUZUMAB EMTANSINE [Suspect]
     Active Substance: ADO-TRASTUZUMAB EMTANSINE
     Indication: HER2 positive breast cancer
     Dosage: 280 MG, EVERY 3 WEEKS
     Route: 041
     Dates: start: 20180131
  37. CALCIUM CARBONATE\CHOLECALCIFEROL [Concomitant]
     Active Substance: CALCIUM CARBONATE\CHOLECALCIFEROL
     Indication: Product used for unknown indication
     Dosage: 1 DOSAGE FORM, TWO TIMES A DAY
     Route: 048
     Dates: start: 20170621
  38. AMOXICILLIN [Concomitant]
     Active Substance: AMOXICILLIN
     Indication: Product used for unknown indication
     Dosage: UNK, ONCE A DAY
     Route: 048
     Dates: start: 201712
  39. BENZYDAMINE HYDROCHLORIDE [Concomitant]
     Active Substance: BENZYDAMINE HYDROCHLORIDE
     Indication: Product used for unknown indication
     Dosage: UNK UNK, ONCE A DAY
     Route: 048
     Dates: start: 20160722, end: 20160723
  40. CHLORPHENIRAMINE MALEATE [Concomitant]
     Active Substance: CHLORPHENIRAMINE MALEATE
     Indication: Product used for unknown indication
     Dosage: 10 MG
     Route: 042
     Dates: start: 20160907, end: 20160907
  41. CHLORPHENIRAMINE MALEATE [Concomitant]
     Active Substance: CHLORPHENIRAMINE MALEATE
     Dosage: 10 MILLIGRAM
     Route: 042
     Dates: start: 20160928, end: 20170724
  42. HERBALS\SENNOSIDES [Concomitant]
     Active Substance: HERBALS\SENNOSIDES
     Indication: Product used for unknown indication
     Dosage: 15 MILLIGRAM,(15 MILLIGRAM, QD (CUMULATIVE DOSE: 15MG)) ONCE A DAY
     Route: 065
     Dates: start: 20160722
  43. HERBALS\SENNOSIDES [Concomitant]
     Active Substance: HERBALS\SENNOSIDES
     Indication: Product used for unknown indication
     Dosage: 15 MILLIGRAM, ONCE A DAY
     Route: 065
     Dates: start: 20160722
  44. ENOXAPARIN SODIUM [Concomitant]
     Active Substance: ENOXAPARIN SODIUM
     Indication: Product used for unknown indication
     Dosage: 40 MILLIGRAM,(40 MG, QD) ONCE A DAY
     Route: 065
     Dates: start: 20160723, end: 20160723
  45. ENOXAPARIN SODIUM [Concomitant]
     Active Substance: ENOXAPARIN SODIUM
     Dosage: 110 MILLIGRAM,(110 MG, QD) ONCE A DAY
     Route: 058
     Dates: start: 20160825, end: 20160914
  46. ENOXAPARIN SODIUM [Concomitant]
     Active Substance: ENOXAPARIN SODIUM
     Dosage: 40 MILLIGRAM, ONCE A DAY
     Route: 058
     Dates: start: 20160817, end: 20160914
  47. ENOXAPARIN SODIUM [Concomitant]
     Active Substance: ENOXAPARIN SODIUM
     Dosage: UNK, ONCE A DAY
     Route: 058
     Dates: start: 20180214, end: 20180218
  48. CLARITHROMYCIN [Concomitant]
     Active Substance: CLARITHROMYCIN
     Indication: Product used for unknown indication
     Dosage: 500 MILLIGRAM
     Route: 048
     Dates: start: 20180214, end: 20180301
  49. CLARITHROMYCIN [Concomitant]
     Active Substance: CLARITHROMYCIN
     Dosage: 500 MILLIGRAM (START 14-FEB-2018)
     Route: 048
     Dates: start: 20180301
  50. CLARITHROMYCIN LACTOBIONATE [Concomitant]
     Active Substance: CLARITHROMYCIN LACTOBIONATE
     Indication: Product used for unknown indication
     Dosage: 500 MILLIGRAM
     Route: 048
     Dates: start: 20180214
  51. COTRIMOXAZOLE [Concomitant]
     Active Substance: SULFAMETHOXAZOLE\TRIMETHOPRIM
     Indication: Product used for unknown indication
     Dosage: 483 MILLIGRAM, ONCE A DAY
     Route: 048
     Dates: start: 20180131
  52. AMOXICILLIN\CLAVULANATE POTASSIUM [Concomitant]
     Active Substance: AMOXICILLIN\CLAVULANATE POTASSIUM
     Indication: Product used for unknown indication
     Dosage: 625 MG, TID (625 MILLIGRAM, 3/DAY)
     Route: 065
     Dates: start: 20180215, end: 20180301
  53. AMOXICILLIN\CLAVULANATE POTASSIUM [Concomitant]
     Active Substance: AMOXICILLIN\CLAVULANATE POTASSIUM
     Dosage: 1875 MILLIGRAM, QD (START 14-FEB-2018)
     Route: 042
     Dates: start: 20180214, end: 20180214
  54. AMOXICILLIN\CLAVULANATE POTASSIUM [Concomitant]
     Active Substance: AMOXICILLIN\CLAVULANATE POTASSIUM
     Dosage: 2.4 MILLIGRAM,(2.4 MG QD [1.2 GRAM, BID (START 14-FEB-2018)]) ONCE A DAY
     Route: 042
     Dates: start: 20180214, end: 20180301
  55. AMOXICILLIN\CLAVULANATE POTASSIUM [Concomitant]
     Active Substance: AMOXICILLIN\CLAVULANATE POTASSIUM
     Dosage: 4.8 GRAM (4.8 G (1.2 GRAM, BID (START 14-FEB-2018);)
     Route: 042
  56. CODEINE [Concomitant]
     Active Substance: CODEINE
     Indication: Product used for unknown indication
     Dosage: 10 MILLILITER
     Route: 048
     Dates: start: 20170619
  57. CIPROFLOXACIN [Concomitant]
     Active Substance: CIPROFLOXACIN
     Indication: Product used for unknown indication
     Dosage: UNK (START 09-OCT-2016); ;
     Route: 065
     Dates: start: 20161009
  58. CYCLIZINE [Concomitant]
     Active Substance: CYCLIZINE
     Indication: Product used for unknown indication
     Dosage: 50 MILLIGRAM,(50 MG, TID, (3/DAY)) ONCE A DAY
     Route: 048
     Dates: start: 20170902
  59. CHLOROFORM\CODEINE PHOSPHATE\DRIMIA MARITIMA BULB [Concomitant]
     Active Substance: CHLOROFORM\CODEINE PHOSPHATE\DRIMIA MARITIMA BULB
     Indication: Product used for unknown indication
     Dosage: 10 MILLILITER
     Route: 048
     Dates: start: 20170619
  60. BENZYDAMINE [Concomitant]
     Active Substance: BENZYDAMINE
     Indication: Product used for unknown indication
     Dosage: UNK, ONCE A DAY
     Route: 048
     Dates: start: 20160722
  61. DOCUSATE [Concomitant]
     Active Substance: DOCUSATE
     Indication: Product used for unknown indication
     Dosage: 20 MILLIGRAM, ONCE A DAY
     Route: 048
     Dates: start: 20160722
  62. DEXAMETHASONE [Concomitant]
     Active Substance: DEXAMETHASONE
     Indication: Product used for unknown indication
     Dosage: 8 UNK; (DOSE FORM: 32)
     Route: 048
     Dates: start: 20160610, end: 20160611
  63. DEXAMETHASONE [Concomitant]
     Active Substance: DEXAMETHASONE
     Dosage: 4 MILLIGRAM, BID
     Route: 048
     Dates: start: 20160722, end: 20160723
  64. DEXAMETHASONE [Concomitant]
     Active Substance: DEXAMETHASONE
     Dosage: 8 MG, QD (DOSE FORM: 32)
     Route: 042
     Dates: start: 20160803, end: 20160805
  65. DEXAMETHASONE [Concomitant]
     Active Substance: DEXAMETHASONE
     Dosage: UNK, 1X/DAY
     Route: 048
     Dates: start: 20160805, end: 201609
  66. DEXAMETHASONE [Concomitant]
     Active Substance: DEXAMETHASONE
     Dosage: 4 MG, BID
     Route: 048
     Dates: start: 20170616, end: 20170902
  67. DEXAMETHASONE [Concomitant]
     Active Substance: DEXAMETHASONE
     Dosage: 2 MILLIGRAM, QD
     Route: 048
     Dates: start: 20170902, end: 20180110
  68. DEXAMETHASONE [Concomitant]
     Active Substance: DEXAMETHASONE
     Dosage: 2 MG, QD
     Route: 048
     Dates: start: 20200111
  69. DEXAMETHASONE [Concomitant]
     Active Substance: DEXAMETHASONE
     Dosage: 1 DOSAGE FORM, QD
     Route: 048
     Dates: start: 20190805, end: 201909
  70. DEXAMETHASONE [Concomitant]
     Active Substance: DEXAMETHASONE
     Dosage: UNK
     Route: 042
     Dates: start: 20181011
  71. DEXAMETHASONE [Concomitant]
     Active Substance: DEXAMETHASONE
     Indication: Product used for unknown indication
     Dosage: 8 MILLIGRAM, ONCE A DAY
     Route: 042
     Dates: start: 20160803, end: 20160805
  72. DEXAMETHASONE [Concomitant]
     Active Substance: DEXAMETHASONE
     Dosage: 8 MILLIGRAM
     Route: 042
     Dates: start: 20170616, end: 20170616
  73. ENOXAPARIN [Concomitant]
     Active Substance: ENOXAPARIN
     Indication: Product used for unknown indication
     Dosage: 40 MILLIGRAM, ONCE A DAY
     Route: 065
     Dates: start: 20160723, end: 20160723
  74. ENOXAPARIN [Concomitant]
     Active Substance: ENOXAPARIN
     Dosage: 40 MG, QD (CUMULATIVE DOSE: 1040.0 MG)
     Route: 058
     Dates: start: 20160817, end: 20160914
  75. ENOXAPARIN [Concomitant]
     Active Substance: ENOXAPARIN
     Dosage: 40 MILLIGRAM, QD (CUMULATIVE DOSE: 13160.0 MG)
     Route: 058
     Dates: start: 20170616, end: 20170623
  76. ENOXAPARIN [Concomitant]
     Active Substance: ENOXAPARIN
     Dosage: 40 MILLIGRAM,(40 MG, QD) ONCE A DAY
     Route: 058
     Dates: start: 20180105, end: 20180117
  77. FILGRASTIM [Concomitant]
     Active Substance: FILGRASTIM
     Indication: Product used for unknown indication
     Dosage: 300 MICROGRAM
     Route: 065
     Dates: start: 20160731, end: 20161112
  78. GENTAMICIN [Concomitant]
     Active Substance: GENTAMICIN
     Indication: Product used for unknown indication
     Dosage: 375 MILLIGRAM, (375 MILLIGRAM, QD)ONCE A DAY
     Route: 042
     Dates: start: 20161009, end: 20161009
  79. GENTAMICIN [Concomitant]
     Active Substance: GENTAMICIN
     Dosage: 800 MILLIGRAM, ONCE A DAY
     Route: 042
     Dates: start: 20180212
  80. HYDROCORTISONE [Concomitant]
     Active Substance: HYDROCORTISONE
     Indication: Product used for unknown indication
     Dosage: 100 MILLIGRAM
     Route: 042
     Dates: start: 20160907
  81. HYDROCORTISONE [Concomitant]
     Active Substance: HYDROCORTISONE
     Dosage: 100 MG
     Route: 042
     Dates: start: 20160928
  82. HYDROCORTISONE [Concomitant]
     Active Substance: HYDROCORTISONE
     Dosage: 1 GRAM
     Route: 042
     Dates: start: 20170616, end: 20170616
  83. HYDROCORTISONE [Concomitant]
     Active Substance: HYDROCORTISONE
     Dosage: 500 MILLIGRAM, (500 MG PER 0.5 DAY;)TWO TIMES A DAY
     Route: 058
     Dates: start: 20170617
  84. LANSOPRAZOLE [Concomitant]
     Active Substance: LANSOPRAZOLE
     Indication: Product used for unknown indication
     Dosage: 30 MILLIGRAM, (30 MILLIGRAM, QD)ONCE A DAY
     Route: 048
     Dates: start: 20160722, end: 20160724
  85. LANSOPRAZOLE [Concomitant]
     Active Substance: LANSOPRAZOLE
     Dosage: 30 MILLIGRAM,(30 MG, QD) ONCE A DAY
     Route: 048
     Dates: start: 20160809
  86. LANSOPRAZOLE [Concomitant]
     Active Substance: LANSOPRAZOLE
     Dosage: 30 MILLIGRAM, (30 MILLIGRAM, QD)ONCE A DAY
     Route: 048
     Dates: start: 20161010
  87. LEVETIRACETAM [Concomitant]
     Active Substance: LEVETIRACETAM
     Indication: Product used for unknown indication
     Dosage: 1 GRAM, ONCE A DAY
     Route: 042
     Dates: start: 20170616
  88. LEVETIRACETAM [Concomitant]
     Active Substance: LEVETIRACETAM
     Dosage: 1000 MG (CUMULATIVE DOSE: 330000.0 MG)
     Route: 058
     Dates: start: 20170617
  89. LEVETIRACETAM [Concomitant]
     Active Substance: LEVETIRACETAM
     Indication: Product used for unknown indication
     Dosage: 1000 MILLIGRAM, TWO TIMES A DAY
     Route: 048
     Dates: start: 20170617
  90. LEVOMEPROMAZINE [Concomitant]
     Active Substance: LEVOMEPROMAZINE
     Indication: Product used for unknown indication
     Dosage: 6.25 MG
     Route: 058
     Dates: start: 20170617, end: 20170617
  91. LEVOMEPROMAZINE [Concomitant]
     Active Substance: LEVOMEPROMAZINE
     Dosage: UNK
     Route: 065
     Dates: start: 20170908, end: 20170925
  92. LEVOFLOXACIN [Concomitant]
     Active Substance: LEVOFLOXACIN
     Indication: Product used for unknown indication
     Dosage: UNK
     Route: 065
     Dates: start: 20161009
  93. METOCLOPRAMIDE [Concomitant]
     Active Substance: METOCLOPRAMIDE
     Indication: Product used for unknown indication
     Dosage: 10 MILLIGRAM
     Route: 048
     Dates: start: 20160610
  94. METOCLOPRAMIDE [Concomitant]
     Active Substance: METOCLOPRAMIDE
     Dosage: 10 MILLIGRAM
     Route: 048
     Dates: start: 20180131
  95. METOCLOPRAMIDE [Concomitant]
     Active Substance: METOCLOPRAMIDE
     Dosage: 10 MILLIGRAM
     Route: 042
     Dates: start: 20180106
  96. MEROPENEM [Concomitant]
     Active Substance: MEROPENEM
     Indication: Product used for unknown indication
     Dosage: 1 GRAM
     Route: 042
     Dates: start: 20160809
  97. SODIUM CHLORIDE [Concomitant]
     Active Substance: SODIUM CHLORIDE
     Indication: Product used for unknown indication
     Dosage: UNK
     Route: 042
     Dates: start: 20170616, end: 20170616
  98. SODIUM CHLORIDE [Concomitant]
     Active Substance: SODIUM CHLORIDE
     Dosage: UNK
     Route: 042
     Dates: start: 20180105, end: 20180105
  99. SODIUM CHLORIDE [Concomitant]
     Active Substance: SODIUM CHLORIDE
     Dosage: UNK
     Route: 042
     Dates: start: 20180212, end: 20180214
  100. ONDANSETRON [Concomitant]
     Active Substance: ONDANSETRON
     Indication: Product used for unknown indication
     Dosage: 72 MILLIGRAM, (8 MG, TID)ONCE A DAY
     Route: 048
     Dates: start: 20170616, end: 20170626
  101. ONDANSETRON [Concomitant]
     Active Substance: ONDANSETRON
     Dosage: 8 MILLIGRAM (8 MG, TID, (3/D))
     Route: 048
     Dates: start: 20170902
  102. OSELTAMIVIR [Concomitant]
     Active Substance: OSELTAMIVIR
     Indication: Product used for unknown indication
     Dosage: 30 MILLIGRAM, ONCE A DAY
     Route: 065
     Dates: start: 20180213
  103. ACETAMINOPHEN [Concomitant]
     Active Substance: ACETAMINOPHEN
     Indication: Product used for unknown indication
     Dosage: 1 GRAM, (1 G, QD)ONCE A DAY
     Route: 048
     Dates: start: 20160722, end: 20160724
  104. ACETAMINOPHEN [Concomitant]
     Active Substance: ACETAMINOPHEN
     Dosage: 1 MILLIGRAM
     Route: 048
     Dates: start: 20160723, end: 20160724
  105. PIPERACILLIN SODIUM [Concomitant]
     Active Substance: PIPERACILLIN SODIUM
     Indication: Product used for unknown indication
     Dosage: 13.5 MILLIGRAM, ONCE A DAY (4.5 MG, TID)
     Route: 065
     Dates: start: 20180212
  106. RAMIPRIL [Concomitant]
     Active Substance: RAMIPRIL
     Indication: Product used for unknown indication
     Dosage: 2.3 MILLIGRAM, ONCE A DAY
     Route: 065
  107. RAMIPRIL [Concomitant]
     Active Substance: RAMIPRIL
     Dosage: 2.3 MILLIGRAM, QD
     Route: 048
     Dates: start: 20160722
  108. RANITIDINE [Concomitant]
     Active Substance: RANITIDINE
     Indication: Product used for unknown indication
     Dosage: 50 MILLIGRAM
     Route: 048
     Dates: start: 20170617
  109. ALBUTEROL [Concomitant]
     Active Substance: ALBUTEROL
     Indication: Product used for unknown indication
     Dosage: 2.5 MG
     Route: 065
     Dates: start: 20160822, end: 20160908
  110. ALBUTEROL [Concomitant]
     Active Substance: ALBUTEROL
     Dosage: 2.5 MILLIGRAM
     Route: 055
     Dates: start: 20170616
  111. SULFAMETHOXAZOLE\TRIMETHOPRIM [Concomitant]
     Active Substance: SULFAMETHOXAZOLE\TRIMETHOPRIM
     Indication: Product used for unknown indication
     Dosage: 2112 MILLIGRAM
     Route: 042
     Dates: start: 20160811
  112. VANCOMYCIN [Concomitant]
     Active Substance: VANCOMYCIN
     Indication: Product used for unknown indication
     Dosage: UNK
     Route: 048
     Dates: start: 20161009
  113. MORPHINE SULFATE [Concomitant]
     Active Substance: MORPHINE SULFATE
     Indication: Product used for unknown indication
     Dosage: UNK
     Route: 048
     Dates: start: 20160828
  114. MORPHINE SULFATE [Concomitant]
     Active Substance: MORPHINE SULFATE
     Dosage: 15 MILLIGRAM, (15 MG, EVERY 12 HOUR/15 MG, BID)TWO TIMES A DAY
     Route: 048
     Dates: start: 20180213, end: 20180217
  115. SENNA LEAF [Concomitant]
     Active Substance: SENNA LEAF
     Indication: Product used for unknown indication
     Dosage: 15 MILLIGRAM,(QD (CUMULATIVE DOSE: 15MG) ONCE A DAY
     Route: 065
  116. SODIUM CHLORIDE [Concomitant]
     Active Substance: SODIUM CHLORIDE
     Indication: Product used for unknown indication
     Dosage: 5 MILLILITER, 4 WEEK
     Route: 055
     Dates: start: 20170616
  117. SODIUM CHLORIDE [Concomitant]
     Active Substance: SODIUM CHLORIDE
     Dosage: 58.75 MILLILITER, ONCE A DAY
     Route: 048
     Dates: start: 20180105
  118. PIPERACILLIN SODIUM\TAZOBACTAM SODIUM [Concomitant]
     Active Substance: PIPERACILLIN SODIUM\TAZOBACTAM SODIUM
     Indication: Product used for unknown indication
     Dosage: 4.5 MILLIGRAM, 3 TIMES A DAY
     Route: 048
     Dates: start: 20180212
  119. PIPERACILLIN SODIUM\TAZOBACTAM SODIUM [Concomitant]
     Active Substance: PIPERACILLIN SODIUM\TAZOBACTAM SODIUM
     Dosage: 13.5 GRAM
     Route: 048
     Dates: start: 20180212, end: 20180214
  120. TRIMETHOPRIM [Concomitant]
     Active Substance: TRIMETHOPRIM
     Indication: Product used for unknown indication
     Dosage: 50 MILLIGRAM, (50 MG, TID (DOSE FORM: 245))3 TIMES A DAY
     Route: 065
     Dates: start: 20170902
  121. TRIMETHOPRIM [Concomitant]
     Active Substance: TRIMETHOPRIM
     Dosage: 483 MILLIGRAM, ONCE A DAY
     Route: 065
     Dates: start: 20180131
  122. TRIMETHOPRIM [Concomitant]
     Active Substance: TRIMETHOPRIM
     Dosage: 2112 MG; (DOSE FORM: 245)
     Route: 042
     Dates: start: 20160811, end: 20160816
  123. ZOPICLONE [Concomitant]
     Active Substance: ZOPICLONE
     Indication: Product used for unknown indication
     Dosage: 4 MILLIGRAM
     Route: 048
     Dates: start: 20170618, end: 20170619

REACTIONS (16)
  - Disease progression [Fatal]
  - Vomiting [Fatal]
  - Nausea [Fatal]
  - Seizure [Fatal]
  - Dyspnoea [Fatal]
  - Pneumonia [Fatal]
  - Diarrhoea [Fatal]
  - Lower respiratory tract infection [Fatal]
  - Back pain [Fatal]
  - Chest pain [Fatal]
  - Hyponatraemia [Fatal]
  - Pain in jaw [Fatal]
  - Excessive eye blinking [Fatal]
  - Condition aggravated [Fatal]
  - Ejection fraction decreased [Fatal]
  - Off label use [Fatal]

NARRATIVE: CASE EVENT DATE: 20160722
